FAERS Safety Report 24748854 (Version 1)
Quarter: 2024Q4

REPORT INFORMATION
  Report Type: Report from Study
  Country: CA (occurrence: CA)
  Receive Date: 20241218
  Receipt Date: 20241218
  Transmission Date: 20250115
  Serious: Yes (Other)
  Sender: NOVARTIS
  Company Number: CA-SANDOZ-SDZ2023CA017620

PATIENT
  Age: 56 Year
  Sex: Female

DRUGS (1)
  1. FINGOLIMOD [Suspect]
     Active Substance: FINGOLIMOD
     Indication: Product used for unknown indication
     Dosage: 0.5 MG, QD, CAPSULE
     Route: 065
     Dates: start: 20170523

REACTIONS (2)
  - Multiple sclerosis relapse [Unknown]
  - Product dose omission issue [Unknown]
